FAERS Safety Report 6436932-2 (Version None)
Quarter: 2009Q4

REPORT INFORMATION
  Report Type: 
  Country: None (occurrence: None)
  Receive Date: 20091111
  Receipt Date: 20091029
  Transmission Date: 20100525
  Serious: Yes (Hospitalization)
  Sender: FDA-Public Use
  Company Number: PHHY2009ZA42755

PATIENT
  Age: 42 Year
  Sex: Male

DRUGS (3)
  1. EXFORGE [Suspect]
     Indication: HYPERTENSION
     Dosage: UNK
     Dates: start: 20090701
  2. SIMVASTATIN [Concomitant]
  3. LIPITOR [Concomitant]
     Dosage: UNK

REACTIONS (2)
  - IMMUNODEFICIENCY [None]
  - SINUSITIS [None]
